FAERS Safety Report 6530923-9 (Version None)
Quarter: 2010Q1

REPORT INFORMATION
  Report Type: 
  Country: None (occurrence: None)
  Receive Date: 20100108
  Receipt Date: 20090608
  Transmission Date: 20100710
  Serious: No
  Sender: FDA-Public Use
  Company Number: A0789387A

PATIENT
  Age: 57 Year
  Sex: Female

DRUGS (8)
  1. LOVAZA [Suspect]
     Dosage: 2CAP TWICE PER DAY
     Route: 048
     Dates: start: 20060101, end: 20090601
  2. CELEBREX [Concomitant]
  3. LISINOPRIL [Concomitant]
  4. FUROSEMIDE [Concomitant]
  5. PRILOSEC [Concomitant]
  6. BUSPIRONE HCL [Concomitant]
  7. PREMARIN [Concomitant]
  8. ASPIRIN [Concomitant]

REACTIONS (4)
  - BLISTER [None]
  - HERPES ZOSTER [None]
  - RASH [None]
  - URTICARIA [None]
